FAERS Safety Report 23645150 (Version 1)
Quarter: 2024Q1

REPORT INFORMATION
  Report Type: Spontaneous
  Country: US (occurrence: US)
  Receive Date: 20240318
  Receipt Date: 20240318
  Transmission Date: 20240410
  Serious: Yes (Other)
  Sender: FDA-Public Use
  Company Number: US-009507513-2403USA005088

PATIENT
  Age: 74 Year
  Sex: Male

DRUGS (3)
  1. KEYTRUDA [Suspect]
     Active Substance: PEMBROLIZUMAB
     Indication: Renal cancer
     Dosage: UNK, EVERY 6 WEEKS
     Route: 042
     Dates: start: 2021
  2. TKI 258 [Concomitant]
  3. CABOMETYX [Concomitant]
     Active Substance: CABOZANTINIB S-MALATE

REACTIONS (5)
  - Malignant neoplasm progression [Unknown]
  - Blood potassium increased [Unknown]
  - Alopecia [Unknown]
  - Pruritus [Unknown]
  - Product use issue [Unknown]
